FAERS Safety Report 11883168 (Version 9)
Quarter: 2021Q2

REPORT INFORMATION
  Report Type: Report from Study
  Country: JP (occurrence: JP)
  Receive Date: 20151231
  Receipt Date: 20210422
  Transmission Date: 20210716
  Serious: Yes (Death, Life-Threatening, Hospitalization, Other)
  Sender: FDA-Public Use
  Company Number: JP-BRISTOL-MYERS SQUIBB COMPANY-BMS-1527-000001

PATIENT
  Age: 43 Year
  Sex: Female

DRUGS (20)
  1. NIVOLUMAB [Suspect]
     Active Substance: NIVOLUMAB
     Dosage: 2 MG/KG, QD
     Route: 041
     Dates: start: 20150518, end: 20150518
  2. FUNGUARD [Suspect]
     Active Substance: MICAFUNGIN SODIUM
     Indication: PRODUCT USED FOR UNKNOWN INDICATION
     Dosage: 300 MG, QD
     Route: 042
     Dates: start: 20150622
  3. PREDONINE [Concomitant]
     Active Substance: PREDNISOLONE
     Indication: PRODUCT USED FOR UNKNOWN INDICATION
     Dosage: UNK
     Route: 065
  4. NIVOLUMAB [Suspect]
     Active Substance: NIVOLUMAB
     Indication: MALIGNANT MELANOMA
     Dosage: 2 MG/KG, QD
     Route: 041
     Dates: start: 20150216, end: 20150216
  5. NIVOLUMAB [Suspect]
     Active Substance: NIVOLUMAB
     Dosage: 2 MG/KG, QD
     Route: 041
     Dates: start: 20150330, end: 20150330
  6. METHYLPREDNISOLONE. [Concomitant]
     Active Substance: METHYLPREDNISOLONE
     Indication: PRODUCT USED FOR UNKNOWN INDICATION
     Dosage: 40 MG, UNK
     Route: 065
     Dates: start: 20150520
  7. VFEND [Concomitant]
     Active Substance: VORICONAZOLE
     Indication: PRODUCT USED FOR UNKNOWN INDICATION
     Dosage: UNK
     Route: 065
     Dates: start: 20150714
  8. NIVOLUMAB [Suspect]
     Active Substance: NIVOLUMAB
     Dosage: 2 MG/KG, QD
     Route: 041
     Dates: start: 20150420, end: 20150420
  9. NIVOLUMAB [Suspect]
     Active Substance: NIVOLUMAB
     Dosage: 300 MG, QD
     Route: 042
     Dates: start: 20150622
  10. ZELBORAF [Suspect]
     Active Substance: VEMURAFENIB
     Indication: PRODUCT USED FOR UNKNOWN INDICATION
     Route: 065
  11. PREDONINE [PREDNISOLONE SODIUM SUCCINATE] [Concomitant]
     Active Substance: PREDNISOLONE SODIUM SUCCINATE
     Indication: DIARRHOEA
     Dosage: 40 MG, QD
     Route: 065
     Dates: start: 20150518, end: 20150712
  12. METHYLPREDNISOLONE. [Concomitant]
     Active Substance: METHYLPREDNISOLONE
     Dosage: 30 MG, UNK
     Route: 065
  13. MEROPEN [MEROPENEM TRIHYDRATE] [Concomitant]
     Active Substance: MEROPENEM
     Indication: PRODUCT USED FOR UNKNOWN INDICATION
     Route: 065
  14. FOSFLUCONAZOLE [Concomitant]
     Active Substance: FOSFLUCONAZOLE
     Indication: PRODUCT USED FOR UNKNOWN INDICATION
     Dosage: UNK
     Route: 065
     Dates: start: 20150604
  15. NIVOLUMAB [Suspect]
     Active Substance: NIVOLUMAB
     Dosage: 2 MG/KG, QD
     Route: 041
     Dates: start: 20150309, end: 20150309
  16. OMEPRAL [OMEPRAZOLE] [Suspect]
     Active Substance: OMEPRAZOLE
     Indication: PRODUCT USED FOR UNKNOWN INDICATION
     Dosage: UNK
     Route: 065
  17. ANFLAVATE [Concomitant]
     Active Substance: BETAMETHASONE BUTYRATE PROPIONATE
     Indication: PRODUCT USED FOR UNKNOWN INDICATION
     Dosage: UNK
     Route: 065
     Dates: start: 20150319, end: 20150715
  18. METHYLPREDNISOLONE. [Concomitant]
     Active Substance: METHYLPREDNISOLONE
     Dosage: 5 MG, UNK
     Route: 065
  19. NIVOLUMAB [Suspect]
     Active Substance: NIVOLUMAB
     Dosage: UNK
     Route: 065
  20. NIVOLUMAB [Suspect]
     Active Substance: NIVOLUMAB
     Dosage: UNK
     Route: 065

REACTIONS (16)
  - Fungaemia [Not Recovered/Not Resolved]
  - Upper gastrointestinal haemorrhage [Recovered/Resolved]
  - Haemostasis [Unknown]
  - Thyroid disorder [Recovered/Resolved]
  - Aspartate aminotransferase increased [Unknown]
  - Leukoderma [Not Recovered/Not Resolved]
  - Alanine aminotransferase increased [Unknown]
  - Pyrexia [Unknown]
  - Drug eruption [Not Recovered/Not Resolved]
  - Metastases to central nervous system [Fatal]
  - Malignant neoplasm progression [Fatal]
  - Gastrooesophageal reflux disease [Unknown]
  - Cerebral haemorrhage [Unknown]
  - Rash [Recovering/Resolving]
  - Diarrhoea [Not Recovered/Not Resolved]
  - Abdominal cavity drainage [Unknown]

NARRATIVE: CASE EVENT DATE: 2015
